FAERS Safety Report 24101733 (Version 2)
Quarter: 2024Q3

REPORT INFORMATION
  Report Type: Spontaneous
  Country: GB (occurrence: GB)
  Receive Date: 20240717
  Receipt Date: 20240815
  Transmission Date: 20241017
  Serious: Yes (Death, Life-Threatening, Other)
  Sender: CELLTRION
  Company Number: GB-CELLTRION INC.-2024GB016946

PATIENT

DRUGS (1)
  1. INFLIXIMAB [Suspect]
     Active Substance: INFLIXIMAB
     Indication: Colitis ulcerative
     Dosage: UNK
     Dates: start: 20240112, end: 20240117

REACTIONS (2)
  - Pneumonitis [Fatal]
  - COVID-19 [Unknown]

NARRATIVE: CASE EVENT DATE: 20240117
